FAERS Safety Report 6276432-6 (Version None)
Quarter: 2009Q3

REPORT INFORMATION
  Report Type: 
  Country: None (occurrence: None)
  Receive Date: 20090717
  Receipt Date: 20090717
  Transmission Date: 20100115
  Serious: Yes (Other)
  Sender: FDA-Public Use
  Company Number: None

PATIENT
  Age: 46 Year
  Sex: Female
  Weight: 63.5036 kg

DRUGS (2)
  1. ZICAM COLD REMEDY NASAL GEL HOMEOPATHIC ZICAM LLC [Suspect]
     Indication: NASOPHARYNGITIS
     Dosage: 1 SPRAY EACH NOSTRIL 4-5 TIMES PER DAY NASAL
     Route: 045
     Dates: start: 20051201, end: 20090611
  2. ZICAM NO DRIP NASAL GEL HOMEOPATHIC ZICAM LLC [Suspect]
     Indication: NASOPHARYNGITIS
     Dosage: 1 SPRAY EACH NOSTRIL 4-5 TIMES PER DAY NASAL
     Route: 045
     Dates: start: 20051201, end: 20090611

REACTIONS (1)
  - ANOSMIA [None]
